FAERS Safety Report 10223268 (Version 1)
Quarter: 2014Q2

REPORT INFORMATION
  Report Type: Spontaneous
  Country: US (occurrence: US)
  Receive Date: 20140609
  Receipt Date: 20140609
  Transmission Date: 20141212
  Serious: No
  Sender: FDA-Public Use
  Company Number: US-B.I. PHARMACEUTICALS,INC./RIDGEFIELD-2014-BI-24083BP

PATIENT
  Age: 67 Year
  Sex: Male
  Weight: 80 kg

DRUGS (3)
  1. PRADAXA [Suspect]
     Indication: ATRIAL FIBRILLATION
     Dosage: 300 MG
     Route: 048
     Dates: start: 2011
  2. ATORVASTATIN [Concomitant]
     Indication: BLOOD CHOLESTEROL INCREASED
     Dosage: 40 MG
     Route: 048
  3. LOTREL [Concomitant]
     Indication: HYPERTENSION
     Dosage: DOSE PER APPLICATION: 5MG / 20MG; DAILY DOSE:10MG / 40MG
     Route: 048

REACTIONS (6)
  - Gastric ulcer [Not Recovered/Not Resolved]
  - Rectal polyp [Recovered/Resolved]
  - Haemorrhoids [Recovered/Resolved]
  - Helicobacter gastritis [Recovered/Resolved]
  - Rectal haemorrhage [Recovered/Resolved]
  - Gastric haemorrhage [Recovered/Resolved]
